FAERS Safety Report 8400459-9 (Version None)
Quarter: 2012Q2

REPORT INFORMATION
  Report Type: 
  Country: None (occurrence: None)
  Receive Date: 20120531
  Receipt Date: 20110614
  Transmission Date: 20120825
  Serious: No
  Sender: FDA-Public Use
  Company Number: US-NOVEN-11US002628

PATIENT
  Sex: Male
  Weight: 26.757 kg

DRUGS (3)
  1. DAYTRANA [Suspect]
     Dosage: 20 MG, QD
  2. DAYTRANA [Suspect]
     Indication: ATTENTION DEFICIT/HYPERACTIVITY DISORDER
     Dosage: 30 MG, QD
     Route: 062
     Dates: start: 20110301
  3. DAYTRANA [Suspect]
     Dosage: 10 MG, QD

REACTIONS (4)
  - PRODUCT QUALITY ISSUE [None]
  - DECREASED APPETITE [None]
  - WRONG TECHNIQUE IN DRUG USAGE PROCESS [None]
  - WEIGHT DECREASED [None]
